FAERS Safety Report 9889705 (Version 2)
Quarter: 2014Q1

REPORT INFORMATION
  Report Type: Spontaneous
  Country: US (occurrence: US)
  Receive Date: 20140211
  Receipt Date: 20140227
  Transmission Date: 20141002
  Serious: Yes (Other)
  Sender: FDA-Public Use
  Company Number: US-PFIZER INC-2014037535

PATIENT
  Age: 69 Year
  Sex: Female

DRUGS (1)
  1. CELEBREX [Suspect]
     Indication: BACK PAIN
     Dosage: 200 MG, DAILY
     Route: 048
     Dates: start: 20140130, end: 20140131

REACTIONS (2)
  - Anaphylactic shock [Unknown]
  - Tremor [Unknown]
